FAERS Safety Report 18319166 (Version 1)
Quarter: 2020Q3

REPORT INFORMATION
  Report Type: Spontaneous
  Country: US (occurrence: US)
  Receive Date: 20200928
  Receipt Date: 20200928
  Transmission Date: 20201103
  Serious: Yes (Hospitalization)
  Sender: FDA-Public Use
  Company Number: None

PATIENT
  Age: 46 Year
  Sex: Male
  Weight: 110.25 kg

DRUGS (3)
  1. KETOROLAC [Suspect]
     Active Substance: KETOROLAC TROMETHAMINE
     Indication: PAIN
     Route: 042
     Dates: start: 20200615, end: 20200615
  2. METHOCARBAMOL 100 MG/ML [Concomitant]
     Dates: start: 20200615, end: 20200615
  3. HYDROMORPHONE [Suspect]
     Active Substance: HYDROMORPHONE
     Indication: PAIN
     Route: 042
     Dates: start: 20200615, end: 20200615

REACTIONS (2)
  - Dizziness postural [None]
  - Hemiparesis [None]

NARRATIVE: CASE EVENT DATE: 20200615
